FAERS Safety Report 15244745 (Version 1)
Quarter: 2018Q3

REPORT INFORMATION
  Report Type: Report from Study
  Country: US (occurrence: US)
  Receive Date: 20180806
  Receipt Date: 20180806
  Transmission Date: 20181010
  Serious: Yes (Other)
  Sender: FDA-Public Use
  Company Number: US-SHIRE-US201829599

PATIENT
  Sex: Female

DRUGS (1)
  1. HUMAN NORMAL IMMUNOGLOBULIN; LIQUID 20 [Suspect]
     Active Substance: HUMAN IMMUNOGLOBULIN G
     Indication: PRIMARY IMMUNODEFICIENCY SYNDROME
     Route: 065

REACTIONS (8)
  - Abdominal pain [Unknown]
  - Abdominal distension [Unknown]
  - Pyrexia [Unknown]
  - Vomiting [Unknown]
  - Lung infection [Unknown]
  - Staphylococcal infection [Unknown]
  - Gastrointestinal disorder [Unknown]
  - Lymphadenopathy [Unknown]
